FAERS Safety Report 14129885 (Version 3)
Quarter: 2018Q2

REPORT INFORMATION
  Report Type: Report from Study
  Country: US (occurrence: US)
  Receive Date: 20171026
  Receipt Date: 20180423
  Transmission Date: 20180711
  Serious: No
  Sender: FDA-Public Use
  Company Number: US-AMGEN-USASL2017143232

PATIENT
  Age: 50 Year
  Sex: Female

DRUGS (1)
  1. REPATHA [Suspect]
     Active Substance: EVOLOCUMAB
     Indication: PRODUCT USED FOR UNKNOWN INDICATION
     Dosage: 140 MG, Q2WK
     Route: 058
     Dates: start: 20170912

REACTIONS (5)
  - Asthenia [Unknown]
  - Pain [Unknown]
  - Nausea [Unknown]
  - Fatigue [Unknown]
  - Influenza [Unknown]

NARRATIVE: CASE EVENT DATE: 20170914
